FAERS Safety Report 6636564-7 (Version None)
Quarter: 2010Q1

REPORT INFORMATION
  Report Type: 
  Country: None (occurrence: None)
  Receive Date: 20100311
  Receipt Date: 20100301
  Transmission Date: 20100710
  Serious: Yes (Other)
  Sender: FDA-Public Use
  Company Number: 524969

PATIENT
  Age: 7 Year
  Sex: Male

DRUGS (4)
  1. CARBOPLATIN [Suspect]
     Indication: GLIOBLASTOMA MULTIFORME
  2. ETOPOSIDE [Suspect]
     Indication: GLIOBLASTOMA MULTIFORME
  3. THIOTEPA [Suspect]
     Indication: GLIOBLASTOMA MULTIFORME
  4. CYCLOPHOSPHAMIDE [Suspect]
     Indication: GLIOBLASTOMA MULTIFORME

REACTIONS (2)
  - ACUTE MYELOID LEUKAEMIA [None]
  - MYELODYSPLASTIC SYNDROME [None]
